FAERS Safety Report 19680352 (Version 1)
Quarter: 2021Q3

REPORT INFORMATION
  Report Type: Spontaneous
  Country: GB (occurrence: GB)
  Receive Date: 20210810
  Receipt Date: 20210810
  Transmission Date: 20211014
  Serious: Yes (Other)
  Sender: FDA-Public Use
  Company Number: GB-COLLEGIUM PHARMACEUTICAL, INC.-2021CGM00920

PATIENT
  Age: 31 Year
  Sex: Female
  Weight: 71 kg

DRUGS (5)
  1. AMITRIPTYLINE [Concomitant]
     Active Substance: AMITRIPTYLINE
     Dosage: UNK
     Dates: start: 2018
  2. SALBUTAMOL [Concomitant]
     Active Substance: ALBUTEROL
     Dosage: UNK
     Dates: start: 2010
  3. QUTENZA [Suspect]
     Active Substance: CAPSAICIN
     Indication: SCAR PAIN
     Dosage: UNK
     Route: 003
     Dates: start: 2020, end: 202101
  4. TAPENTADOL [Suspect]
     Active Substance: TAPENTADOL
     Indication: BACK PAIN
     Dosage: 100 MG, 2X/DAY
     Route: 048
     Dates: start: 2019
  5. QUTENZA [Suspect]
     Active Substance: CAPSAICIN
     Dosage: UNK
     Dates: start: 20201103, end: 20210216

REACTIONS (8)
  - Foetal hypokinesia [Recovered/Resolved]
  - Maternal exposure during pregnancy [Recovered/Resolved]
  - Product supply issue [Unknown]
  - Prolonged labour [Recovered/Resolved]
  - Intrapartum haemorrhage [Recovered/Resolved]
  - Premature delivery [Recovered/Resolved]
  - Haemorrhage in pregnancy [Recovered/Resolved]
  - Small for dates baby [Recovered/Resolved]

NARRATIVE: CASE EVENT DATE: 20201012
